FAERS Safety Report 8069038-X (Version None)
Quarter: 2011Q4

REPORT INFORMATION
  Report Type: 
  Country: None (occurrence: None)
  Receive Date: 20111221
  Receipt Date: 20110118
  Transmission Date: 20120403
  Serious: Yes (Hospitalization)
  Sender: FDA-Public Use
  Company Number: PHHY2011US04252

PATIENT
  Age: 35 Year
  Sex: Male
  Weight: 74.5 kg

DRUGS (3)
  1. FOLIC ACID [Concomitant]
  2. LISINOPRIL [Concomitant]
  3. EXJADE [Suspect]
     Indication: HAEMOCHROMATOSIS
     Dosage: 1500 MG, QD, ORAL
     Route: 048
     Dates: start: 20100104

REACTIONS (3)
  - SICKLE CELL ANAEMIA WITH CRISIS [None]
  - HEPATOMEGALY [None]
  - HEPATIC SEQUESTRATION [None]
